FAERS Safety Report 11368096 (Version 1)
Quarter: 2015Q3

REPORT INFORMATION
  Report Type: Spontaneous
  Country: US (occurrence: None)
  Receive Date: 20150811
  Receipt Date: 20150811
  Transmission Date: 20151125
  Serious: Yes (Other)
  Sender: FDA-Public Use
  Company Number: None

PATIENT
  Age: 66 Year
  Sex: Female
  Weight: 83.92 kg

DRUGS (10)
  1. CERITINIB [Concomitant]
     Active Substance: CERITINIB
  2. VITAMIN D3 [Concomitant]
     Active Substance: CHOLECALCIFEROL
  3. MELATONIN [Concomitant]
     Active Substance: MELATONIN
  4. ESSIAC TRUE PINE [Concomitant]
  5. MAGNESIUM [Concomitant]
     Active Substance: MAGNESIUM
  6. BOSWELLA [Concomitant]
  7. TURKEY TAIL REISHI MUSHROOM [Concomitant]
  8. HYDROCHLOROTHIAZIDE. [Concomitant]
     Active Substance: HYDROCHLOROTHIAZIDE
  9. HYDROCHLOROTHIAZIDE. [Suspect]
     Active Substance: HYDROCHLOROTHIAZIDE
     Indication: BLOOD PRESSURE INCREASED
     Route: 048
     Dates: start: 20150401, end: 20150810
  10. LACTO BACILLIUS [Concomitant]

REACTIONS (3)
  - No reaction on previous exposure to drug [None]
  - Rash erythematous [None]
  - Urticaria [None]

NARRATIVE: CASE EVENT DATE: 20150709
